FAERS Safety Report 20997775 (Version 4)
Quarter: 2023Q2

REPORT INFORMATION
  Report Type: Report from Study
  Country: FR (occurrence: FR)
  Receive Date: 20220623
  Receipt Date: 20230523
  Transmission Date: 20230721
  Serious: Yes (Hospitalization)
  Sender: FDA-Public Use
  Company Number: FR-CHURS-202200016

PATIENT
  Age: 73 Year
  Sex: Male
  Weight: 55 kg

DRUGS (6)
  1. REGORAFENIB [Suspect]
     Active Substance: REGORAFENIB
     Indication: Colorectal cancer metastatic
     Dosage: 120 MG (3 WEEKS ON/1 WEEK OFF)
     Route: 048
     Dates: start: 20220516, end: 20220602
  2. REGORAFENIB [Suspect]
     Active Substance: REGORAFENIB
     Indication: Colorectal cancer metastatic
     Dosage: 80 MG (3 WEEKS ON/1 WEEK OFF)
     Dates: start: 20220621, end: 20220710
  3. METOCLOPRAMIDE [Concomitant]
     Active Substance: METOCLOPRAMIDE
     Indication: Nausea
     Dosage: 1 DF, TID (IF NAUSEA)
     Route: 048
  4. RACECADOTRIL ARROW [Concomitant]
     Indication: Diarrhoea
     Dosage: 1 DF, PRN (IF DIARRHOEA, MAX 3 PER DAY)
     Route: 048
  5. LOPERAMIDE [Concomitant]
     Active Substance: LOPERAMIDE
     Indication: Diarrhoea
     Dosage: 2 DF, PRN (IF DIARRHEOA, MAX 6 PER DAY)
  6. SMECTA [Concomitant]
     Active Substance: MONTMORILLONITE

REACTIONS (2)
  - Thrombotic microangiopathy [Recovered/Resolved]
  - Chemotherapeutic drug level above therapeutic [Unknown]

NARRATIVE: CASE EVENT DATE: 20220601
